FAERS Safety Report 8508648-X (Version None)
Quarter: 2012Q3

REPORT INFORMATION
  Report Type: 
  Country: None (occurrence: None)
  Receive Date: 20120713
  Receipt Date: 20120702
  Transmission Date: 20120928
  Serious: Yes (Hospitalization)
  Sender: FDA-Public Use
  Company Number: FR-CELGENEUS-056-21880-12070230

PATIENT
  Sex: Female

DRUGS (2)
  1. REVLIMID [Suspect]
     Indication: T-CELL LYMPHOMA
     Dosage: 25 MILLIGRAM
     Route: 048
     Dates: start: 20120519, end: 20120520
  2. DEXAMETHASONE [Suspect]
     Indication: T-CELL LYMPHOMA
     Dosage: 40 MILLIGRAM
     Route: 065
     Dates: start: 20120519, end: 20120520

REACTIONS (2)
  - SYSTEMIC INFLAMMATORY RESPONSE SYNDROME [None]
  - CYTOKINE RELEASE SYNDROME [None]
